FAERS Safety Report 8691020 (Version 3)
Quarter: 2012Q4

REPORT INFORMATION
  Report Type: 
  Country: US (occurrence: US)
  Receive Date: 20120730
  Receipt Date: 20120913
  Transmission Date: 20130627
  Serious: No
  Sender: FDA-Public Use
  Company Number: US-JNJFOC-20120709978

PATIENT
  Age: 46 Year
  Sex: Female
  Weight: 58.97 kg

DRUGS (10)
  1. SANDOZ FENTANYL TRANSDERMAL SYSTEM [Suspect]
     Indication: PAIN IN EXTREMITY
     Route: 062
     Dates: start: 20120714
  2. SANDOZ FENTANYL TRANSDERMAL SYSTEM [Suspect]
     Indication: BACK PAIN
     Route: 062
     Dates: start: 20120714
  3. DURAGESIC [Suspect]
     Indication: PAIN
     Route: 062
     Dates: start: 20120706, end: 20120824
  4. RECLIPSEN [Concomitant]
     Indication: CONTRACEPTION
     Route: 048
  5. ATENOLOL [Concomitant]
     Indication: HYPERTENSION
     Route: 048
     Dates: start: 1972
  6. HYDROCODONE [Concomitant]
     Indication: BREAKTHROUGH PAIN
     Dosage: 10-325 mg as needed/daily
     Route: 048
     Dates: start: 2002
  7. VITAMINS (NOS) [Concomitant]
     Indication: NUTRITIONAL SUPPORT
     Route: 048
  8. CALCIUM [Concomitant]
     Indication: NUTRITIONAL SUPPORT
     Route: 048
  9. OMEGA 3 [Concomitant]
     Route: 048
  10. GLUCOSAMINE [Concomitant]
     Indication: ARTHRITIS
     Route: 048

REACTIONS (3)
  - Product quality issue [Recovering/Resolving]
  - Wrong technique in drug usage process [Unknown]
  - Product adhesion issue [None]
